FAERS Safety Report 7503280-9 (Version None)
Quarter: 2011Q2

REPORT INFORMATION
  Report Type: 
  Country: None (occurrence: None)
  Receive Date: 20110525
  Receipt Date: 20110513
  Transmission Date: 20111010
  Serious: Yes (Death, Hospitalization)
  Sender: FDA-Public Use
  Company Number: CA-ACTELION-A-US2011-47094

PATIENT

DRUGS (6)
  1. TRACLEER [Suspect]
     Indication: PULMONARY ARTERIAL HYPERTENSION
     Dosage: 125 MG, BID
     Route: 048
     Dates: end: 20101225
  2. TRACLEER [Suspect]
     Dosage: 62.5 MG, BID
     Route: 048
     Dates: start: 20081030
  3. REGULAR INSULIN [Concomitant]
  4. FUROSEMIDE [Concomitant]
  5. LEVOTHYROXINE SODIUM [Concomitant]
  6. MOXIFLOXACIN [Concomitant]

REACTIONS (8)
  - VIRAL INFECTION [None]
  - UNRESPONSIVE TO STIMULI [None]
  - OEDEMA PERIPHERAL [None]
  - CARDIAC ARREST [None]
  - PULSELESS ELECTRICAL ACTIVITY [None]
  - DIABETES MELLITUS INADEQUATE CONTROL [None]
  - CARDIAC FAILURE [None]
  - DYSPNOEA [None]
